FAERS Safety Report 26100626 (Version 1)
Quarter: 2025Q4

REPORT INFORMATION
  Report Type: Spontaneous
  Country: US (occurrence: US)
  Receive Date: 20251128
  Receipt Date: 20251128
  Transmission Date: 20260117
  Serious: No
  Sender: BIONPHARMA INC.
  Company Number: US-Bion-015316

PATIENT
  Age: 76 Year
  Sex: Female

DRUGS (3)
  1. SODIUM SULFATE, POTASSIUM SULFATE AND MAGNESIUM SULFATE [Suspect]
     Active Substance: MAGNESIUM SULFATE, UNSPECIFIED\POTASSIUM SULFATE\SODIUM SULFATE
     Indication: Colonoscopy
  2. FAMOTIDINE [Concomitant]
     Active Substance: FAMOTIDINE
     Indication: Product used for unknown indication
  3. PRAVASTATIN [Concomitant]
     Active Substance: PRAVASTATIN
     Indication: Product used for unknown indication

REACTIONS (6)
  - Nausea [Unknown]
  - Abdominal discomfort [Unknown]
  - Bowel movement irregularity [Unknown]
  - Diarrhoea [Unknown]
  - Diarrhoea [Unknown]
  - Malaise [Unknown]
